FAERS Safety Report 11932999 (Version 1)
Quarter: 2016Q1

REPORT INFORMATION
  Report Type: Spontaneous
  Country: US (occurrence: US)
  Receive Date: 20160120
  Receipt Date: 20160120
  Transmission Date: 20160526
  Serious: Yes (Other)
  Sender: FDA-Public Use
  Company Number: PHEH2016US001435

PATIENT
  Sex: Female

DRUGS (3)
  1. LAMISIL [Suspect]
     Active Substance: TERBINAFINE HYDROCHLORIDE
     Indication: NAIL INFECTION
     Route: 065
  2. HUMIRA [Suspect]
     Active Substance: ADALIMUMAB
     Indication: CROHN^S DISEASE
     Dosage: 1 DF, BIW
     Route: 065
     Dates: start: 2010
  3. HUMIRA [Suspect]
     Active Substance: ADALIMUMAB
     Dosage: 1 DF, BIW
     Route: 065
     Dates: start: 2013

REACTIONS (3)
  - Nail infection [Unknown]
  - Drug hypersensitivity [Unknown]
  - Drug ineffective [Unknown]
